FAERS Safety Report 21420503 (Version 2)
Quarter: 2023Q1

REPORT INFORMATION
  Report Type: Report from Study
  Country: US (occurrence: US)
  Receive Date: 20221007
  Receipt Date: 20230127
  Transmission Date: 20230418
  Serious: Yes (Other)
  Sender: FDA-Public Use
  Company Number: US-ABBVIE-4134194

PATIENT
  Sex: Female

DRUGS (3)
  1. SKYRIZI [Suspect]
     Active Substance: RISANKIZUMAB-RZAA
     Indication: Psoriasis
     Dosage: WEEK 4
     Route: 058
     Dates: start: 202208, end: 202208
  2. SKYRIZI [Suspect]
     Active Substance: RISANKIZUMAB-RZAA
     Dosage: WEEK 0?DISCONTINUED IN 2022
     Route: 058
     Dates: start: 202207
  3. SKYRIZI [Suspect]
     Active Substance: RISANKIZUMAB-RZAA
     Dosage: EVERY 12 WEEKS
     Route: 058
     Dates: start: 202208

REACTIONS (7)
  - Spinal pain [Unknown]
  - Therapeutic response shortened [Not Recovered/Not Resolved]
  - Psoriasis [Not Recovered/Not Resolved]
  - Arthralgia [Not Recovered/Not Resolved]
  - Drug ineffective [Unknown]
  - Loss of personal independence in daily activities [Unknown]
  - Back pain [Not Recovered/Not Resolved]
